FAERS Safety Report 7305109-0 (Version None)
Quarter: 2011Q1

REPORT INFORMATION
  Report Type: 
  Country: None (occurrence: None)
  Receive Date: 20110222
  Receipt Date: 20110214
  Transmission Date: 20110831
  Serious: Yes (Hospitalization, Other)
  Sender: FDA-Public Use
  Company Number: US-SANOFI-AVENTIS-2011SA010183

PATIENT
  Sex: Female

DRUGS (3)
  1. LANTUS [Suspect]
     Route: 058
  2. OPTICLICK [Suspect]
  3. NOVOLOG [Suspect]
     Route: 065

REACTIONS (3)
  - NODULE [None]
  - CARDIAC FAILURE CONGESTIVE [None]
  - FALL [None]
